FAERS Safety Report 5224456-X (Version None)
Quarter: 2007Q1

REPORT INFORMATION
  Report Type: 
  Country: None (occurrence: None)
  Receive Date: 20070130
  Receipt Date: 20070119
  Transmission Date: 20070707
  Serious: Yes (Hospitalization, Other)
  Sender: FDA-Public Use
  Company Number: FR-PFIZER INC-2007002249

PATIENT
  Sex: Female
  Weight: 60 kg

DRUGS (8)
  1. LYRICA [Suspect]
     Indication: NEURALGIA
  2. LEVOTHYROXINE SODIUM [Concomitant]
     Route: 048
  3. BUMETANIDE [Concomitant]
     Route: 048
  4. SOTALOL HYDROCHLORIDE [Concomitant]
     Route: 048
  5. AMLODIPINE [Concomitant]
     Route: 048
  6. ASPIRIN [Concomitant]
     Route: 048
  7. TRAMADOL HCL [Concomitant]
     Route: 048
  8. INSULIN ASPART [Concomitant]
     Route: 058

REACTIONS (1)
  - DEPRESSED LEVEL OF CONSCIOUSNESS [None]
